FAERS Safety Report 13426991 (Version 1)
Quarter: 2017Q2

REPORT INFORMATION
  Report Type: Spontaneous
  Country: MX (occurrence: MX)
  Receive Date: 20170411
  Receipt Date: 20170411
  Transmission Date: 20170830
  Serious: Yes (Other)
  Sender: FDA-Public Use
  Company Number: MX-SA-2017SA057587

PATIENT
  Sex: Male

DRUGS (2)
  1. ZALTRAP [Suspect]
     Active Substance: ZIV-AFLIBERCEPT
     Indication: COLORECTAL CANCER METASTATIC
     Dosage: INTRAVENOUS SOLUTION OF AFLIBERCEPT
     Route: 042
     Dates: start: 20170327, end: 20170327
  2. ZALTRAP [Suspect]
     Active Substance: ZIV-AFLIBERCEPT
     Indication: COLORECTAL CANCER METASTATIC
     Dosage: INTRAVENOUS SOLUTION OF AFLIBERCEPT
     Route: 042

REACTIONS (1)
  - Abdominal wall abscess [Recovered/Resolved]
